FAERS Safety Report 23388391 (Version 1)
Quarter: 2024Q1

REPORT INFORMATION
  Report Type: Spontaneous
  Country: US (occurrence: US)
  Receive Date: 20240110
  Receipt Date: 20240110
  Transmission Date: 20240410
  Serious: Yes (Death, Other)
  Sender: FDA-Public Use
  Company Number: US-PFIZER INC-202400009005

PATIENT
  Age: 3 Year
  Sex: Male

DRUGS (3)
  1. HYDROXYZINE PAMOATE [Suspect]
     Active Substance: HYDROXYZINE PAMOATE
     Dosage: UNK (INGESTION)
     Route: 048
  2. ACETAMINOPHEN [Suspect]
     Active Substance: ACETAMINOPHEN
     Dosage: UNK (INGESTION)
     Route: 048
  3. IBUPROFEN [Suspect]
     Active Substance: IBUPROFEN
     Dosage: UNK (INGESTION)
     Route: 048

REACTIONS (2)
  - Death [Fatal]
  - Medication error [Fatal]

NARRATIVE: CASE EVENT DATE: 20220101
